FAERS Safety Report 19094148 (Version 2)
Quarter: 2022Q3

REPORT INFORMATION
  Report Type: Spontaneous
  Country: CA (occurrence: CA)
  Receive Date: 20210405
  Receipt Date: 20220708
  Transmission Date: 20221027
  Serious: Yes (Hospitalization, Other)
  Sender: FDA-Public Use
  Company Number: CA-GLAXOSMITHKLINE-CA2019GSK132064

PATIENT

DRUGS (9)
  1. LAMOTRIGINE [Suspect]
     Active Substance: LAMOTRIGINE
     Indication: Product used for unknown indication
     Dosage: UNK
     Dates: start: 201906
  2. FYCOMPA [Suspect]
     Active Substance: PERAMPANEL
     Indication: Epilepsy
     Dosage: 2 MG, 1D
     Route: 048
     Dates: start: 2019, end: 2019
  3. FYCOMPA [Suspect]
     Active Substance: PERAMPANEL
     Indication: Focal dyscognitive seizures
     Dosage: 4 MG, 1D
     Route: 048
     Dates: start: 2019, end: 2019
  4. FYCOMPA [Suspect]
     Active Substance: PERAMPANEL
     Dosage: 6 MG, 1D
     Route: 048
     Dates: start: 2019
  5. FYCOMPA [Suspect]
     Active Substance: PERAMPANEL
     Dosage: 8 MG, 1D
     Route: 048
  6. FYCOMPA [Suspect]
     Active Substance: PERAMPANEL
     Dosage: 10 MG, 1D
     Route: 048
  7. FYCOMPA [Suspect]
     Active Substance: PERAMPANEL
     Dosage: 12 MG, 1D
     Route: 048
  8. RAMIPRIL [Concomitant]
     Active Substance: RAMIPRIL
     Indication: Product used for unknown indication
     Dosage: UNK
  9. CLOBAZAM [Concomitant]
     Active Substance: CLOBAZAM
     Indication: Product used for unknown indication
     Dosage: UNK
     Route: 048

REACTIONS (12)
  - Epilepsy [Recovered/Resolved]
  - Blood pressure fluctuation [Recovered/Resolved]
  - Chronic kidney disease [Recovered/Resolved]
  - Confusional state [Recovered/Resolved]
  - Fatigue [Recovered/Resolved]
  - Hypertension [Recovered/Resolved]
  - Influenza [Recovered/Resolved]
  - Nausea [Recovered/Resolved]
  - Transient ischaemic attack [Recovered/Resolved]
  - Platelet count decreased [Recovered/Resolved]
  - Urinary incontinence [Recovered/Resolved]
  - Intentional product use issue [Unknown]
